FAERS Safety Report 17803376 (Version 1)
Quarter: 2020Q2

REPORT INFORMATION
  Report Type: Spontaneous
  Country: RU (occurrence: RU)
  Receive Date: 20200519
  Receipt Date: 20200519
  Transmission Date: 20200714
  Serious: Yes (Life-Threatening, Hospitalization)
  Sender: FDA-Public Use
  Company Number: RU-TEVA-2020-RU-1237524

PATIENT
  Age: 3 Year
  Sex: Male
  Weight: 18 kg

DRUGS (2)
  1. SUMAMED [Suspect]
     Active Substance: AZITHROMYCIN ANHYDROUS
     Indication: PNEUMONIA
  2. SUMAMED [Suspect]
     Active Substance: AZITHROMYCIN ANHYDROUS
     Indication: PNEUMONIA
     Dosage: 187.5 MILLIGRAM DAILY;
     Route: 048
     Dates: start: 20150925, end: 20150927

REACTIONS (3)
  - Angioedema [Recovered/Resolved]
  - Dermatitis allergic [Recovered/Resolved]
  - Urticaria [Recovered/Resolved]

NARRATIVE: CASE EVENT DATE: 20150925
